FAERS Safety Report 7936978-9 (Version None)
Quarter: 2011Q4

REPORT INFORMATION
  Report Type: 
  Country: None (occurrence: None)
  Receive Date: 20111123
  Receipt Date: 20111118
  Transmission Date: 20120403
  Serious: Yes (Other)
  Sender: FDA-Public Use
  Company Number: US-ROCHE-791798

PATIENT
  Sex: Female
  Weight: 65.83 kg

DRUGS (6)
  1. ACCUTANE [Suspect]
     Dates: start: 20001208, end: 20010101
  2. ACCUTANE [Suspect]
     Indication: ACNE
     Route: 065
  3. PAXIL [Concomitant]
  4. ACCUTANE [Suspect]
     Dates: start: 20000915, end: 20001208
  5. ACCUTANE [Suspect]
     Route: 065
     Dates: start: 20000728, end: 20000915
  6. SYNTHROID [Concomitant]

REACTIONS (7)
  - LIP DRY [None]
  - BLOOD TRIGLYCERIDES INCREASED [None]
  - COLITIS ULCERATIVE [None]
  - INFLAMMATORY BOWEL DISEASE [None]
  - ANXIETY [None]
  - BLOOD CHOLESTEROL INCREASED [None]
  - DEPRESSION [None]
